FAERS Safety Report 14652478 (Version 1)
Quarter: 2018Q1

REPORT INFORMATION
  Report Type: Spontaneous
  Country: FR (occurrence: FR)
  Receive Date: 20180318
  Receipt Date: 20180318
  Transmission Date: 20180509
  Serious: Yes (Other)
  Sender: FDA-Public Use
  Company Number: FR-MERCK KGAA-2043995

PATIENT
  Age: 43 Year
  Sex: Female

DRUGS (1)
  1. NOVOTHYROX [Suspect]
     Active Substance: LEVOTHYROXINE SODIUM
     Indication: AUTOIMMUNE THYROID DISORDER
     Dates: end: 20171016

REACTIONS (16)
  - Apathy [Recovered/Resolved]
  - Fatigue [Recovered/Resolved]
  - Depressed mood [Recovered/Resolved]
  - Decreased interest [Recovered/Resolved]
  - Loss of libido [Recovered/Resolved]
  - Vision blurred [Recovered/Resolved]
  - Chest pain [Recovered/Resolved]
  - Asthenia [Recovered/Resolved]
  - Impaired work ability [Recovered/Resolved]
  - Loss of personal independence in daily activities [Recovered/Resolved]
  - Disturbance in social behaviour [Recovered/Resolved]
  - Factitious disorder [Recovered/Resolved]
  - Headache [Recovered/Resolved]
  - Impaired quality of life [Recovered/Resolved]
  - Physical disability [Recovered/Resolved]
  - Nervousness [Recovered/Resolved]
